FAERS Safety Report 18452074 (Version 2)
Quarter: 2020Q4

REPORT INFORMATION
  Report Type: Report from Study
  Country: CA (occurrence: CA)
  Receive Date: 20201102
  Receipt Date: 20201127
  Transmission Date: 20210114
  Serious: Yes (Other)
  Sender: FDA-Public Use
  Company Number: CA-EMD SERONO-9194663

PATIENT
  Age: 38 Year
  Sex: Female

DRUGS (3)
  1. MAVENCLAD [Suspect]
     Active Substance: CLADRIBINE
     Indication: MULTIPLE SCLEROSIS
     Dosage: YEAR ONE WEEK ONE THERAPY.
     Route: 048
     Dates: start: 20190610, end: 20190614
  2. MAVENCLAD [Suspect]
     Active Substance: CLADRIBINE
     Dosage: YEAR ONE WEEK FIVE THERAPY.
     Route: 048
     Dates: start: 20190708, end: 20190712
  3. IMURAN [Suspect]
     Active Substance: AZATHIOPRINE
     Indication: MULTIPLE SCLEROSIS
     Dates: end: 202005

REACTIONS (3)
  - Lower respiratory tract infection [Recovering/Resolving]
  - Lymphocyte count decreased [Not Recovered/Not Resolved]
  - Contraindicated product prescribed [Unknown]

NARRATIVE: CASE EVENT DATE: 202009
